FAERS Safety Report 25396834 (Version 1)
Quarter: 2025Q2

REPORT INFORMATION
  Report Type: Spontaneous
  Country: CA (occurrence: None)
  Receive Date: 20250604
  Receipt Date: 20250604
  Transmission Date: 20250717
  Serious: Yes (Hospitalization, Disabling)
  Sender: FDA-CTU
  Company Number: None

PATIENT
  Age: 24 Year
  Sex: Female
  Weight: 58.5 kg

DRUGS (2)
  1. ESCITALOPRAM [Suspect]
     Active Substance: ESCITALOPRAM OXALATE
     Indication: Depression
     Dates: start: 20160615, end: 20240601
  2. ESCITALOPRAM [Suspect]
     Active Substance: ESCITALOPRAM OXALATE
     Indication: Anxiety

REACTIONS (19)
  - Akathisia [None]
  - Withdrawal syndrome [None]
  - Tremor [None]
  - Vision blurred [None]
  - Eye pain [None]
  - Photophobia [None]
  - Discomfort [None]
  - Bradykinesia [None]
  - Fatigue [None]
  - Decreased appetite [None]
  - Weight decreased [None]
  - Insomnia [None]
  - Vertigo [None]
  - Dizziness [None]
  - Depersonalisation/derealisation disorder [None]
  - Derealisation [None]
  - Palpitations [None]
  - Muscular weakness [None]
  - Memory impairment [None]

NARRATIVE: CASE EVENT DATE: 20230611
